FAERS Safety Report 15687333 (Version 3)
Quarter: 2019Q1

REPORT INFORMATION
  Report Type: Spontaneous
  Country: HU (occurrence: HU)
  Receive Date: 20181205
  Receipt Date: 20190104
  Transmission Date: 20190417
  Serious: No
  Sender: FDA-Public Use
  Company Number: HU-BIOGEN-2018BI00664923

PATIENT
  Age: 23 Year
  Sex: Female

DRUGS (2)
  1. AVONEX [Suspect]
     Active Substance: INTERFERON BETA-1A
     Indication: RELAPSING-REMITTING MULTIPLE SCLEROSIS
     Route: 065
     Dates: start: 2006, end: 200708
  2. REBIF [Suspect]
     Active Substance: INTERFERON BETA-1A
     Indication: RELAPSING-REMITTING MULTIPLE SCLEROSIS
     Route: 065

REACTIONS (5)
  - Spinal disorder [Unknown]
  - Drug ineffective [Unknown]
  - Optic neuritis [Unknown]
  - Inflammation [Unknown]
  - Paresis [Unknown]

NARRATIVE: CASE EVENT DATE: 2007
